FAERS Safety Report 8116970-4 (Version None)
Quarter: 2012Q1

REPORT INFORMATION
  Report Type: 
  Country: None (occurrence: None)
  Receive Date: 20120206
  Receipt Date: 20120201
  Transmission Date: 20120608
  Serious: Yes (Hospitalization)
  Sender: FDA-Public Use
  Company Number: DE-ROCHE-759249

PATIENT
  Sex: Male

DRUGS (15)
  1. BLEOMYCIN SULFATE [Suspect]
     Indication: HODGKIN'S DISEASE
     Dosage: DOSAGE FORM: INFUSION. LATEST DOSE: 08 FEBRUARY 2011, LAST DOSE PRIOR TO SAE: 16 FEBRUARY 2011.
     Route: 042
  2. ETOPOSIDE [Suspect]
     Indication: HODGKIN'S DISEASE
     Dosage: LATEST DOSE: 09 FEBRUARY 2011, LAST DOSE PRIOR TO SAE: 11 FEBRUARY 2011.
     Route: 065
  3. LEVOFLOXACIN [Concomitant]
     Dates: start: 20110214, end: 20110220
  4. PANTOPRAZOLE [Concomitant]
  5. PROCARBAZINE HYDROCHLORIDE [Suspect]
     Indication: HODGKIN'S DISEASE
     Dosage: LATEST DOSE: 09 FEBRUARY 2011, LAST DOSE PRIOR TO SAE: 15 FEBRUARY 2011.
     Route: 065
  6. VINCRISTINE [Suspect]
     Indication: HODGKIN'S DISEASE
     Dosage: LATEST DOSE: 09 FEBRUARY 2011, LAST DOSE PRIOR TO SAE: 16 FEBRUARY 2011.
     Route: 065
  7. COTRIM [Concomitant]
  8. MABTHERA [Suspect]
     Indication: HODGKIN'S DISEASE
     Dosage: DOSAGE FORM: INFUSION.  LATEST DOSE: 8 FEB 2011, LAST DOSE PRIOR TO SAE: 08 FEBRUARY 2011.
     Route: 042
  9. DOXORUBICIN HCL [Suspect]
     Indication: HODGKIN'S DISEASE
     Dosage: DOSAGE FORM: INFUSION. LATEST DOSE: 9 FEBRUARY 2011, LAST DOSE PRIOR TO SAE: 09 FEB 2011.
     Route: 042
  10. LEVOFLOXACIN [Concomitant]
  11. PREDNISONE TAB [Suspect]
     Indication: HODGKIN'S DISEASE
     Dosage: LATEST DOSE: 09 FEBRUARY 2011, LAST DOSE PRIOR TO SAE: 22 FEBRUARY 2011.
     Route: 065
  12. NEULASTA [Concomitant]
  13. PANTOPRAZOLE [Concomitant]
  14. COTRIM [Concomitant]
  15. CYCLOPHOSPHAMIDE [Suspect]
     Indication: HODGKIN'S DISEASE
     Dosage: LATEST DOSE: 09 FEBRUARY 2011, LAST DOSE PRIOR TO SAE: 09 FEBRUARY 2011.
     Route: 065

REACTIONS (5)
  - INFECTION [None]
  - GENERAL PHYSICAL HEALTH DETERIORATION [None]
  - ANAEMIA [None]
  - DYSPNOEA [None]
  - THROMBOPHLEBITIS [None]
